FAERS Safety Report 16672872 (Version 1)
Quarter: 2019Q3

REPORT INFORMATION
  Report Type: Spontaneous
  Country: FR (occurrence: FR)
  Receive Date: 20190806
  Receipt Date: 20190806
  Transmission Date: 20191004
  Serious: Yes (Other)
  Sender: FDA-Public Use
  Company Number: FR-MYLANLABS-M-EU-2012020016

PATIENT
  Age: 29 Year
  Sex: Male
  Weight: 73 kg

DRUGS (26)
  1. VEPESIDE [Suspect]
     Active Substance: ETOPOSIDE
     Indication: ACUTE LYMPHOCYTIC LEUKAEMIA
     Dosage: 277.5 MILLIGRAM, TOTAL
     Route: 042
     Dates: start: 20111103, end: 20111104
  2. DEXAMETHASONE PHOSPHATE W/NEOMYCIN [Suspect]
     Active Substance: DEXAMETHASONE\NEOMYCIN
     Dosage: 40 MILLIGRAM, QD
     Route: 042
     Dates: start: 20111101, end: 20111104
  3. FASTURTEC [Suspect]
     Active Substance: RASBURICASE
     Indication: ACUTE LYMPHOCYTIC LEUKAEMIA
     Dosage: UNK
     Route: 065
     Dates: start: 20111101
  4. IXPRIM [Concomitant]
     Active Substance: ACETAMINOPHEN\TRAMADOL HYDROCHLORIDE
     Dosage: 2 DOSAGE FORM, QD
     Route: 065
  5. EMEND [Concomitant]
     Active Substance: APREPITANT
     Dosage: 80 MG, UNK
     Route: 048
     Dates: start: 20111102, end: 20111104
  6. DEXAMETHASONE PHOSPHATE W/NEOMYCIN [Suspect]
     Active Substance: DEXAMETHASONE\NEOMYCIN
     Indication: ACUTE LYMPHOCYTIC LEUKAEMIA
     Dosage: 40 MG, UNK
     Route: 042
     Dates: start: 20111101, end: 20111103
  7. METHOTREXATE. [Concomitant]
     Active Substance: METHOTREXATE
     Indication: ACUTE LYMPHOCYTIC LEUKAEMIA
     Dosage: UNK
     Route: 028
     Dates: start: 20111031
  8. ERWINASE [Concomitant]
     Active Substance: ASPARAGINASE ERWINIA CHRYSANTHEMI
     Indication: ACUTE LYMPHOCYTIC LEUKAEMIA
     Dosage: UNK
  9. NOVANTRONE [Suspect]
     Active Substance: MITOXANTRONE HYDROCHLORIDE
     Indication: ACUTE LYMPHOCYTIC LEUKAEMIA
     Dosage: 14.8 MILLIGRAM, TOTAL
     Route: 042
     Dates: start: 20111103, end: 20111104
  10. DEPO-MEDROL [Concomitant]
     Active Substance: METHYLPREDNISOLONE ACETATE
     Dosage: UNK MILLIGRAM
     Route: 024
     Dates: start: 20111031
  11. DELURSAN [Concomitant]
     Active Substance: URSODIOL
     Dosage: 1 G, UNK
  12. ZYVOXYD [Concomitant]
     Dosage: 1200 MG, UNK
     Dates: end: 20111104
  13. PROFENID [Concomitant]
     Active Substance: KETOPROFEN
     Dosage: 100 MILLIGRAM, QD
  14. ARACYTINE [Concomitant]
     Active Substance: CYTARABINE
     Dosage: UNK
     Route: 024
     Dates: start: 20111031
  15. DUPHALAC [Concomitant]
     Active Substance: LACTULOSE
     Dosage: 1 DF, UNK
     Dates: end: 20111104
  16. EMEND [Concomitant]
     Active Substance: APREPITANT
     Dosage: 125 MG, UNK
     Route: 048
     Dates: start: 20111101
  17. TAVANIC [Concomitant]
     Active Substance: LEVOFLOXACIN
     Dosage: UNK
     Route: 048
     Dates: start: 20111101
  18. EVOLTRA [Suspect]
     Active Substance: CLOFARABINE
     Indication: ACUTE LYMPHOCYTIC LEUKAEMIA
     Dosage: 55.5 MILLIGRAM, QD
     Route: 042
     Dates: start: 20111101, end: 20111103
  19. INIPOMP [Concomitant]
     Active Substance: PANTOPRAZOLE SODIUM
     Dosage: 40 MILLIGRAM, QD
  20. ARACYTINE [Concomitant]
     Active Substance: CYTARABINE
     Indication: ACUTE LYMPHOCYTIC LEUKAEMIA
     Dosage: UNK
     Route: 028
     Dates: start: 20111031
  21. DEPO-MEDROL [Concomitant]
     Active Substance: METHYLPREDNISOLONE ACETATE
     Indication: LYMPHOCYTIC LEUKAEMIA
     Dosage: 40 MG, UNK
     Route: 028
     Dates: start: 20111031
  22. ZOPHREN                            /00955301/ [Concomitant]
     Active Substance: ONDANSETRON
     Dosage: UNK
     Dates: start: 20111101
  23. TAVANIC [Concomitant]
     Active Substance: LEVOFLOXACIN
     Dosage: 500 MG, UNK
     Route: 048
     Dates: end: 20111101
  24. STILNOX [Concomitant]
     Active Substance: ZOLPIDEM TARTRATE
     Dosage: 10 MG, UNK
     Dates: end: 20111103
  25. METHOTREXATE. [Concomitant]
     Active Substance: METHOTREXATE
     Dosage: UNK
     Route: 024
     Dates: start: 20111031
  26. STILNOX [Concomitant]
     Active Substance: ZOLPIDEM TARTRATE
     Dosage: UNK
     Route: 065
     Dates: start: 20111103

REACTIONS (3)
  - Liver injury [Recovered/Resolved]
  - Prothrombin time shortened [Recovered/Resolved]
  - Hepatitis [Recovered/Resolved]

NARRATIVE: CASE EVENT DATE: 20111104
